FAERS Safety Report 16873113 (Version 1)
Quarter: 2019Q4

REPORT INFORMATION
  Report Type: Spontaneous
  Country: US (occurrence: US)
  Receive Date: 20191001
  Receipt Date: 20191001
  Transmission Date: 20200122
  Serious: Yes (Hospitalization)
  Sender: FDA-Public Use
  Company Number: None

PATIENT
  Age: 66 Year
  Sex: Female
  Weight: 61.4 kg

DRUGS (3)
  1. PHENYLEPHRINE 2.5% OPHTHALMIC [Concomitant]
     Dates: start: 20190321, end: 20190321
  2. TROPICAMIDE 1% OPHTHALMIC [Concomitant]
     Dates: start: 20190321, end: 20190321
  3. FLUORESCEIN [Suspect]
     Active Substance: FLUORESCEIN
     Indication: DIAGNOSTIC PROCEDURE
     Route: 040
     Dates: start: 20190321, end: 20190321

REACTIONS (3)
  - Anaphylactic reaction [None]
  - Cardio-respiratory arrest [None]
  - Vomiting [None]

NARRATIVE: CASE EVENT DATE: 20190321
